FAERS Safety Report 6690812-6 (Version None)
Quarter: 2010Q2

REPORT INFORMATION
  Report Type: 
  Country: None (occurrence: None)
  Receive Date: 20100421
  Receipt Date: 20100412
  Transmission Date: 20101027
  Serious: Yes (Hospitalization)
  Sender: FDA-Public Use
  Company Number: JP-GENENTECH-299157

PATIENT
  Age: 47 Year
  Sex: Female

DRUGS (7)
  1. RITUXIMAB [Suspect]
     Indication: SYSTEMIC LUPUS ERYTHEMATOSUS
     Dosage: 375 MG, UNK
     Route: 042
  2. PREDNISOLONE [Concomitant]
     Indication: DRUG USE FOR UNKNOWN INDICATION
     Dosage: UNK MG, UNK
  3. PREDNISOLONE [Concomitant]
     Dosage: 50 MG, UNK
  4. PREDNISOLONE [Concomitant]
     Dosage: 45 MG, UNK
  5. PREDNISOLONE [Concomitant]
     Dosage: 40 MG, UNK
  6. CYCLOPHOSPHAMIDE [Concomitant]
     Indication: DRUG USE FOR UNKNOWN INDICATION
     Dosage: UNK
     Route: 042
  7. CYCLOPHOSPHAMIDE [Concomitant]
     Dosage: UNK
     Route: 042

REACTIONS (1)
  - HISTIOCYTOSIS HAEMATOPHAGIC [None]
